FAERS Safety Report 14657700 (Version 7)
Quarter: 2019Q3

REPORT INFORMATION
  Report Type: Report from Study
  Country: JP (occurrence: JP)
  Receive Date: 20180320
  Receipt Date: 20190725
  Transmission Date: 20191004
  Serious: Yes (Disabling, Other)
  Sender: FDA-Public Use
  Company Number: JP-CONCORDIA PHARMACEUTICALS INC.-GSH201803-000984

PATIENT
  Age: 73 Year
  Sex: Male
  Weight: 51 kg

DRUGS (10)
  1. RABEPRAZOLE NA [Concomitant]
     Active Substance: RABEPRAZOLE SODIUM
     Indication: PROPHYLAXIS
     Dates: start: 201610
  2. BONOTEO [Concomitant]
     Active Substance: MINODRONIC ACID
     Indication: PROPHYLAXIS
  3. HUMALOG [Concomitant]
     Active Substance: INSULIN LISPRO
     Indication: STEROID DIABETES
  4. ARTZ [Suspect]
     Active Substance: HYALURONATE SODIUM
     Indication: SYSTEMIC LUPUS ERYTHEMATOSUS
     Route: 014
     Dates: start: 20161014, end: 20161014
  5. BAKTAR [Concomitant]
     Active Substance: SULFAMETHOXAZOLE\TRIMETHOPRIM
     Indication: PROPHYLAXIS
     Dates: start: 201610
  6. TRAZENTA [Concomitant]
     Active Substance: LINAGLIPTIN
     Indication: STEROID DIABETES
  7. PLAQUENIL [Suspect]
     Active Substance: HYDROXYCHLOROQUINE SULFATE
     Route: 048
     Dates: start: 20161008, end: 20161015
  8. PLAQUENIL [Suspect]
     Active Substance: HYDROXYCHLOROQUINE SULFATE
     Route: 048
     Dates: start: 20161128
  9. PLAQUENIL [Suspect]
     Active Substance: HYDROXYCHLOROQUINE SULFATE
     Indication: SYSTEMIC LUPUS ERYTHEMATOSUS
     Route: 048
     Dates: start: 20161008, end: 20161015
  10. METHYLPREDNISOLONE. [Suspect]
     Active Substance: METHYLPREDNISOLONE
     Indication: SYSTEMIC LUPUS ERYTHEMATOSUS
     Route: 042
     Dates: start: 20161004

REACTIONS (4)
  - Osteoarthritis [Unknown]
  - Thrombocytopenia [Recovered/Resolved]
  - Arthritis bacterial [Recovered/Resolved with Sequelae]
  - Condition aggravated [Unknown]

NARRATIVE: CASE EVENT DATE: 20161011
